FAERS Safety Report 10017186 (Version 1)
Quarter: 2014Q1

REPORT INFORMATION
  Report Type: Other
  Country: GB (occurrence: GB)
  Receive Date: 20140318
  Receipt Date: 20140318
  Transmission Date: 20141002
  Serious: Yes (Hospitalization)
  Sender: FDA-Public Use
  Company Number: GB-LUPIN PHARMACEUTICALS INC.-E2B_00001800

PATIENT
  Age: 75 Year
  Sex: Male

DRUGS (7)
  1. LOSARTAN [Suspect]
     Indication: HYPERTENSION
     Route: 048
     Dates: end: 20140206
  2. FUROSEMIDE [Suspect]
     Indication: HYPERTENSION
     Route: 048
  3. FUROSEMIDE [Suspect]
     Route: 048
     Dates: end: 20140206
  4. BISOPROLOL [Concomitant]
     Indication: PRODUCT USED FOR UNKNOWN INDICATION
     Route: 065
  5. CODEINE [Concomitant]
     Indication: PRODUCT USED FOR UNKNOWN INDICATION
     Route: 065
  6. PARACETAMOL [Concomitant]
     Indication: PRODUCT USED FOR UNKNOWN INDICATION
     Route: 065
  7. SIMVASTATIN [Concomitant]
     Indication: PRODUCT USED FOR UNKNOWN INDICATION
     Route: 065

REACTIONS (2)
  - Renal failure acute [Recovering/Resolving]
  - Condition aggravated [Unknown]
